FAERS Safety Report 7825858-5 (Version None)
Quarter: 2011Q4

REPORT INFORMATION
  Report Type: 
  Country: None (occurrence: None)
  Receive Date: 20111019
  Receipt Date: 20111010
  Transmission Date: 20120403
  Serious: Yes (Hospitalization)
  Sender: FDA-Public Use
  Company Number: FR-ASTRAZENECA-2011SE61493

PATIENT
  Age: 29964 Day
  Sex: Female

DRUGS (13)
  1. LANTUS [Concomitant]
  2. CRESTOR [Concomitant]
     Route: 048
     Dates: end: 20110829
  3. SITAGLIPTIN PHOSPHATE [Suspect]
     Route: 048
     Dates: end: 20110808
  4. STABLON [Suspect]
     Route: 048
     Dates: start: 20110601, end: 20110829
  5. METFORMIN HCL [Suspect]
     Route: 048
     Dates: end: 20110808
  6. ARICEPT [Suspect]
     Route: 048
     Dates: start: 20110201, end: 20110823
  7. FUROSEMIDE [Suspect]
     Route: 048
     Dates: end: 20110808
  8. SOTALOL HCL [Concomitant]
  9. FERROUS SULFATE TAB [Concomitant]
  10. IRBESARTAN [Concomitant]
  11. DOMPERIDONE [Concomitant]
     Route: 048
     Dates: start: 20110501, end: 20110829
  12. COUMADIN [Concomitant]
     Route: 048
     Dates: end: 20110829
  13. NEXIUM [Suspect]
     Route: 048
     Dates: end: 20110829

REACTIONS (1)
  - CYTOLYTIC HEPATITIS [None]
